FAERS Safety Report 21633000 (Version 1)
Quarter: 2022Q4

REPORT INFORMATION
  Report Type: Spontaneous
  Country: CN (occurrence: CN)
  Receive Date: 20221123
  Receipt Date: 20221123
  Transmission Date: 20230113
  Serious: Yes (Hospitalization, Other)
  Sender: FDA-Public Use
  Company Number: CN-SA-SAC20221122000911

PATIENT
  Age: 73 Year
  Sex: Female
  Weight: 45 kg

DRUGS (2)
  1. INSULIN GLARGINE [Suspect]
     Active Substance: INSULIN GLARGINE
     Indication: Lung adenocarcinoma stage IV
     Dosage: 300 IU, QD
     Route: 058
     Dates: start: 20220910
  2. INSULIN ASPART [Suspect]
     Active Substance: INSULIN ASPART
     Indication: Lung adenocarcinoma stage IV
     Dosage: 300 IU, TID
     Route: 058
     Dates: start: 20220910

REACTIONS (2)
  - Hypokalaemia [Recovering/Resolving]
  - Product use in unapproved indication [Unknown]

NARRATIVE: CASE EVENT DATE: 20220910
